FAERS Safety Report 4872536-0 (Version None)
Quarter: 2006Q1

REPORT INFORMATION
  Report Type: 
  Country: None (occurrence: None)
  Receive Date: 20060103
  Receipt Date: 20051221
  Transmission Date: 20060701
  Serious: Yes (Disabling)
  Sender: FDA-Public Use
  Company Number: F1200512003712

PATIENT
  Sex: Female

DRUGS (3)
  1. FORTEO [Suspect]
     Indication: OSTEOPOROSIS
     Dosage: 20 UG DAILY (1/D), SUBCUTANEOUS
     Route: 058
     Dates: start: 20041201
  2. OXYCODONE HCL [Concomitant]
  3. CYMBALTA [Concomitant]

REACTIONS (3)
  - DIFFICULTY IN WALKING [None]
  - PAIN [None]
  - PAIN IN EXTREMITY [None]
